FAERS Safety Report 11287797 (Version 2)
Quarter: 2015Q3

REPORT INFORMATION
  Report Type: Spontaneous
  Country: GR (occurrence: GR)
  Receive Date: 20150721
  Receipt Date: 20150818
  Transmission Date: 20151125
  Serious: Yes (Other)
  Sender: FDA-Public Use
  Company Number: GR-NOVOPROD-455495

PATIENT
  Age: 75 Year
  Sex: Male
  Weight: 80 kg

DRUGS (9)
  1. SALOSPIR [Concomitant]
     Active Substance: ASPIRIN\CAFFEINE
     Dosage: 1 TAB QD
     Route: 048
  2. SIMVAPROL [Concomitant]
     Dosage: 1 FILM COATED TABLET EVERY OTHER DAY
     Route: 048
  3. VICTOZA [Suspect]
     Active Substance: LIRAGLUTIDE
     Dosage: 0.6 MG, QD
     Route: 058
     Dates: start: 20150629
  4. GLUCOPHAGE [Concomitant]
     Active Substance: METFORMIN HYDROCHLORIDE
     Indication: TYPE 2 DIABETES MELLITUS
     Dosage: 3 TABS QD
     Route: 048
  5. VICTOZA [Suspect]
     Active Substance: LIRAGLUTIDE
     Dosage: 1.2 MG, QD (MORNING)
     Route: 058
     Dates: start: 20150504, end: 20150624
  6. VICTOZA [Suspect]
     Active Substance: LIRAGLUTIDE
     Indication: TYPE 2 DIABETES MELLITUS
     Dosage: 0.6 MG, QD (MORNING)
     Route: 058
     Dates: start: 20150427
  7. HYPOLOC [Concomitant]
     Dosage: 1/2 A TAB QD
     Route: 048
  8. TRIATEC PLUS [Concomitant]
     Indication: HYPERTENSION
     Dosage: 1 TAB DAILY
  9. DIALOSA [Concomitant]
     Indication: TYPE 2 DIABETES MELLITUS
     Dosage: 1 TAB QD
     Route: 048

REACTIONS (4)
  - Tachycardia [Recovered/Resolved]
  - Blood glucose increased [Recovered/Resolved]
  - Dizziness [Recovered/Resolved]
  - Balance disorder [Recovered/Resolved]

NARRATIVE: CASE EVENT DATE: 20150623
